FAERS Safety Report 6647406-8 (Version None)
Quarter: 2010Q1

REPORT INFORMATION
  Report Type: 
  Country: None (occurrence: None)
  Receive Date: 20100323
  Receipt Date: 20100319
  Transmission Date: 20100710
  Serious: Yes (Life-Threatening)
  Sender: FDA-Public Use
  Company Number: JP-SANOFI-AVENTIS-2010SA016054

PATIENT
  Sex: Female

DRUGS (5)
  1. ELPLAT [Suspect]
     Indication: COLON CANCER
     Route: 041
     Dates: start: 20100119, end: 20100119
  2. AVASTIN [Suspect]
     Indication: COLON CANCER
     Route: 041
     Dates: start: 20100119
  3. CALCIUM LEVOFOLINATE [Suspect]
     Indication: COLON CANCER
     Route: 041
     Dates: start: 20100119
  4. FLUOROURACIL [Suspect]
     Indication: COLON CANCER
     Route: 040
     Dates: start: 20100119
  5. FLUOROURACIL [Suspect]
     Route: 041
     Dates: start: 20100119

REACTIONS (1)
  - PULMONARY OEDEMA [None]
